FAERS Safety Report 6126381-9 (Version None)
Quarter: 2009Q1

REPORT INFORMATION
  Report Type: 
  Country: None (occurrence: None)
  Receive Date: 20090320
  Receipt Date: 20090311
  Transmission Date: 20090719
  Serious: Yes (Hospitalization, Other)
  Sender: FDA-Public Use
  Company Number: AU-AVENTIS-200911001GDDC

PATIENT
  Age: 61 Year
  Sex: Female

DRUGS (9)
  1. DOCETAXEL [Suspect]
     Route: 041
     Dates: start: 20071004, end: 20071004
  2. BLINDED BEVACIZUMAB [Suspect]
     Route: 041
     Dates: start: 20070303
  3. BEVACIZUMAB [Suspect]
     Route: 041
     Dates: start: 20080724
  4. XELODA [Concomitant]
     Dates: start: 20080725
  5. CELEBREX [Concomitant]
     Dates: start: 20081015
  6. GLUCOSAMINE [Concomitant]
  7. LIPITOR [Concomitant]
  8. DIABEX [Concomitant]
  9. DILANTIN                           /00017401/ [Concomitant]
     Dates: start: 20080925

REACTIONS (3)
  - CRANIAL NERVE PARALYSIS [None]
  - SYNCOPE [None]
  - TRANSIENT ISCHAEMIC ATTACK [None]
